FAERS Safety Report 12339383 (Version 1)
Quarter: 2016Q2

REPORT INFORMATION
  Report Type: Spontaneous
  Country: US (occurrence: US)
  Receive Date: 20160505
  Receipt Date: 20160505
  Transmission Date: 20160815
  Serious: No
  Sender: FDA-Public Use
  Company Number: US-JAZZ-2015-US-012569

PATIENT
  Sex: Female
  Weight: 83.9 kg

DRUGS (13)
  1. FISH OIL CONCENTRATE [Concomitant]
     Indication: PRODUCT USED FOR UNKNOWN INDICATION
     Dosage: UNK
     Dates: start: 20141121
  2. XYREM [Suspect]
     Active Substance: SODIUM OXYBATE
     Dosage: 3.75 G FIRST DOSE
     Route: 048
     Dates: end: 20150821
  3. RELPAX [Concomitant]
     Active Substance: ELETRIPTAN HYDROBROMIDE
     Indication: PRODUCT USED FOR UNKNOWN INDICATION
     Dosage: UNK
     Dates: start: 20141219
  4. TURMERIC [Concomitant]
     Active Substance: TURMERIC
     Indication: PRODUCT USED FOR UNKNOWN INDICATION
     Dosage: UNK
     Dates: start: 20141121
  5. TYLENOL ARTHRITIS PAIN [Concomitant]
     Active Substance: ACETAMINOPHEN
     Indication: PRODUCT USED FOR UNKNOWN INDICATION
     Dosage: UNK
     Dates: start: 20141121
  6. XYREM [Suspect]
     Active Substance: SODIUM OXYBATE
     Indication: NARCOLEPSY
     Dosage: 2.25 G, BID
     Route: 048
     Dates: start: 201411, end: 201412
  7. LEXAPRO [Concomitant]
     Active Substance: ESCITALOPRAM OXALATE
     Indication: CATAPLEXY
     Dosage: 1 TAB, AS NEEDED
     Route: 048
     Dates: start: 20150210
  8. XYREM [Suspect]
     Active Substance: SODIUM OXYBATE
     Dosage: 3.5 G SECOND DOSE
     Route: 048
     Dates: end: 20150821
  9. LEXAPRO [Concomitant]
     Active Substance: ESCITALOPRAM OXALATE
     Indication: DEPRESSION
  10. TYLENOL ARTHRITIS PAIN [Concomitant]
     Active Substance: ACETAMINOPHEN
     Dosage: UNK
  11. SYNTHROID [Concomitant]
     Active Substance: LEVOTHYROXINE SODIUM
     Indication: HYPOTHYROIDISM
     Dosage: 2.75 ?G, DAILY
     Route: 048
  12. ADDERALL [Concomitant]
     Active Substance: AMPHETAMINE ASPARTATE\AMPHETAMINE SULFATE\DEXTROAMPHETAMINE SACCHARATE\DEXTROAMPHETAMINE SULFATE
     Indication: NARCOLEPSY
     Dosage: 1 TAB, DAILY AS NEEDED
     Dates: start: 20141121
  13. XYREM [Suspect]
     Active Substance: SODIUM OXYBATE
     Indication: CATAPLEXY
     Dosage: DOSE ADJUSTMENTS
     Route: 048

REACTIONS (12)
  - Drug ineffective [Unknown]
  - Urinary incontinence [Recovered/Resolved]
  - Poor quality sleep [Unknown]
  - Weight increased [Not Recovered/Not Resolved]
  - Nocturia [Unknown]
  - Urine odour abnormal [Not Recovered/Not Resolved]
  - Thyroid cyst [Not Recovered/Not Resolved]
  - Bowel movement irregularity [Unknown]
  - Fatigue [Unknown]
  - Somnambulism [Not Recovered/Not Resolved]
  - Memory impairment [Not Recovered/Not Resolved]
  - Gait disturbance [Unknown]

NARRATIVE: CASE EVENT DATE: 2015
